FAERS Safety Report 8463146-7 (Version None)
Quarter: 2012Q2

REPORT INFORMATION
  Report Type: 
  Country: None (occurrence: None)
  Receive Date: 20120323
  Receipt Date: 20111007
  Transmission Date: 20120825
  Serious: Yes (Hospitalization)
  Sender: FDA-Public Use
  Company Number: 163-21880-11092923

PATIENT
  Age: 61 Year
  Sex: Male

DRUGS (11)
  1. REVLIMID [Suspect]
     Indication: MYELODYSPLASTIC SYNDROME
     Dosage: 10 MG, 1 IN 1 D, PO ; 5 MG, 1 IN 1 D, PO
     Route: 048
     Dates: start: 20110901
  2. REVLIMID [Suspect]
     Indication: MYELODYSPLASTIC SYNDROME
     Dosage: 10 MG, 1 IN 1 D, PO ; 5 MG, 1 IN 1 D, PO
     Route: 048
     Dates: start: 20110901
  3. BISACODYL [Concomitant]
  4. MIRALAX [Concomitant]
  5. POTASSIUM CHLORIDE [Concomitant]
  6. RISPERDAL [Concomitant]
  7. LORAZEPAM [Concomitant]
  8. CYMBALTA (DULOXETINE HYDROCHLORDIE) [Concomitant]
  9. LAMOTRIGINE [Concomitant]
  10. PINK BISMUTH (BISMUTH SUBCARBONATE) [Concomitant]
  11. EXTRA STRENGTH TYLENOL [Concomitant]

REACTIONS (4)
  - NAUSEA [None]
  - VOMITING [None]
  - HAEMOGLOBIN DECREASED [None]
  - WHITE BLOOD CELL COUNT DECREASED [None]
